FAERS Safety Report 8857268 (Version 3)
Quarter: 2013Q1

REPORT INFORMATION
  Report Type: Spontaneous
  Country: US (occurrence: US)
  Receive Date: 20121024
  Receipt Date: 20130301
  Transmission Date: 20140127
  Serious: Yes (Hospitalization)
  Sender: FDA-Public Use
  Company Number: US-BIOGENIDEC-2012BI046194

PATIENT
  Age: 51 Year
  Sex: Female

DRUGS (1)
  1. TYSABRI [Suspect]
     Indication: MULTIPLE SCLEROSIS
     Route: 042
     Dates: start: 20120418, end: 20120620

REACTIONS (9)
  - Hip fracture [Not Recovered/Not Resolved]
  - Pelvic fracture [Not Recovered/Not Resolved]
  - Pneumonia [Recovered/Resolved]
  - Pulmonary haemorrhage [Recovered/Resolved]
  - Pyrexia [Recovered/Resolved]
  - Infection parasitic [Recovered/Resolved]
  - Influenza [Recovered/Resolved]
  - Kidney infection [Unknown]
  - Multiple sclerosis relapse [Unknown]
